FAERS Safety Report 8462695-5 (Version None)
Quarter: 2012Q2

REPORT INFORMATION
  Report Type: 
  Country: None (occurrence: None)
  Receive Date: 20120619
  Receipt Date: 20120619
  Transmission Date: 20120825
  Serious: Yes (Hospitalization)
  Sender: FDA-Public Use
  Company Number: None

PATIENT
  Age: 40 Year
  Sex: Male

DRUGS (1)
  1. PROPOFOL [Suspect]
     Indication: ENDOSCOPY
     Dosage: 50 MG 2 DOSES IV BOLUS
     Route: 040
     Dates: start: 20120323, end: 20120323

REACTIONS (3)
  - HAEMODYNAMIC INSTABILITY [None]
  - CARDIO-RESPIRATORY ARREST [None]
  - NERVOUS SYSTEM DISORDER [None]
